FAERS Safety Report 9230613 (Version 1)
Quarter: 2013Q2

REPORT INFORMATION
  Report Type: Spontaneous
  Country: AU (occurrence: None)
  Receive Date: 20130411
  Receipt Date: 20130411
  Transmission Date: 20140414
  Serious: Yes (Hospitalization, Other)
  Sender: FDA-Public Use
  Company Number: 2013000088

PATIENT
  Age: 63 Year
  Sex: Female

DRUGS (6)
  1. ACEON [Suspect]
     Indication: ESSENTIAL HYPERTENSION
     Route: 048
     Dates: end: 20121016
  2. ATORVASTATIN (ATORVASTATIN) [Concomitant]
  3. BENZHEXOL HYDROCHLORIDE (BENZHEXOL HYDROCHLORIDE) [Concomitant]
  4. ESOMEPRAZOLE (ESOMEPRAZOLE)? [Concomitant]
  5. PERICYAXINE (PERICIAZINE) [Concomitant]
  6. TRIFLUOPERAZINE HYDROCHLORIDE (TRIFLUOPERAZINE HYDROCHLORIDE) [Concomitant]

REACTIONS (4)
  - Dyspnoea [None]
  - Swollen tongue [None]
  - Swelling face [None]
  - Dysphonia [None]
